FAERS Safety Report 20790409 (Version 1)
Quarter: 2022Q2

REPORT INFORMATION
  Report Type: Other
  Country: IT (occurrence: IT)
  Receive Date: 20220505
  Receipt Date: 20220505
  Transmission Date: 20220721
  Serious: Yes (Hospitalization)
  Sender: FDA-Public Use
  Company Number: IT-MACLEODS PHARMACEUTICALS US LTD-MAC2022035434

PATIENT

DRUGS (5)
  1. CANDESARTAN [Suspect]
     Active Substance: CANDESARTAN
     Indication: Product used for unknown indication
     Dosage: 224 MILLIGRAM, SINGLE (ABUSE / MISUSE)
     Route: 048
     Dates: start: 20220218, end: 20220218
  2. ARIPIPRAZOLE [Suspect]
     Active Substance: ARIPIPRAZOLE
     Indication: Schizophrenia
     Dosage: 280 MILLIGRAM, SINGLE
     Route: 048
     Dates: start: 20220218, end: 20220218
  3. VALPROATE SODIUM [Suspect]
     Active Substance: VALPROATE SODIUM
     Indication: Schizophrenia
     Dosage: 600 MILLIGRAM, SINGLE (ABUSE / MISUSE)
     Route: 048
     Dates: start: 20220218, end: 20220218
  4. LORAZEPAM [Suspect]
     Active Substance: LORAZEPAM
     Indication: Affective disorder
     Dosage: 10 MILLIGRAM, SINGLE
     Route: 048
     Dates: start: 20220218, end: 20220218
  5. LITHIUM CARBONATE [Suspect]
     Active Substance: LITHIUM CARBONATE
     Indication: Affective disorder
     Dosage: 45 DOSAGE FORM, SINGLE
     Route: 048
     Dates: start: 20220218, end: 20220218

REACTIONS (2)
  - Sopor [Recovering/Resolving]
  - Drug abuse [Recovering/Resolving]

NARRATIVE: CASE EVENT DATE: 20220218
